APPROVED DRUG PRODUCT: CHLORPROMAZINE HYDROCHLORIDE
Active Ingredient: CHLORPROMAZINE HYDROCHLORIDE
Strength: 100MG/ML
Dosage Form/Route: CONCENTRATE;ORAL
Application: A214542 | Product #002 | TE Code: AB
Applicant: GENUS LIFESCIENCES INC
Approved: Jun 2, 2021 | RLD: No | RS: Yes | Type: RX